FAERS Safety Report 9963664 (Version 1)
Quarter: 2014Q1

REPORT INFORMATION
  Report Type: Report from Study
  Country: US (occurrence: US)
  Receive Date: 20140305
  Receipt Date: 20140305
  Transmission Date: 20141002
  Serious: No
  Sender: FDA-Public Use
  Company Number: US-ABBVIE-13P-163-1118619-00

PATIENT
  Age: 36 Year
  Sex: Female

DRUGS (10)
  1. HUMIRA [Suspect]
     Indication: PSORIASIS
     Dates: start: 20130524
  2. WELLBUTRIN [Concomitant]
     Indication: DEPRESSION
     Route: 048
  3. WELLBUTRIN [Concomitant]
     Indication: ANXIETY
  4. CLONAZEPAM [Concomitant]
     Indication: ANXIETY
     Route: 048
  5. TRANDOLAPRIL [Concomitant]
     Indication: HYPERTENSION
     Route: 048
  6. SYNTHYROID [Concomitant]
     Indication: HYPOTHYROIDISM
     Dosage: 75 MCG DAILY
     Route: 048
  7. GABAPENTIN [Concomitant]
     Indication: NEUROPATHY PERIPHERAL
     Dosage: 300 MG DAILY
     Route: 048
  8. NOVOLOG [Concomitant]
     Indication: TYPE 2 DIABETES MELLITUS
     Route: 058
  9. LANTUS [Concomitant]
     Indication: TYPE 2 DIABETES MELLITUS
     Route: 058
  10. PROGESTERONE [Concomitant]
     Indication: CONTRACEPTION

REACTIONS (1)
  - Psoriasis [Not Recovered/Not Resolved]
